FAERS Safety Report 8923434 (Version 1)
Quarter: 2012Q4

REPORT INFORMATION
  Report Type: 
  Country: US (occurrence: US)
  Receive Date: 20121123
  Receipt Date: 20121123
  Transmission Date: 20130627
  Serious: No
  Sender: FDA-Public Use
  Company Number: US-BAYER-2012-121291

PATIENT
  Age: 81 Year
  Sex: Female
  Weight: 58.96 kg

DRUGS (2)
  1. ALEVE CAPLET/TABLET,MIDOL EXTENDED RELIEF CAPLET [Suspect]
     Dosage: 1 DF, PRN
     Route: 048
  2. LEVOTHYROXINE [Concomitant]

REACTIONS (1)
  - Therapeutic response decreased [None]
